FAERS Safety Report 8540398-6 (Version None)
Quarter: 2012Q3

REPORT INFORMATION
  Report Type: 
  Country: None (occurrence: None)
  Receive Date: 20120726
  Receipt Date: 20110406
  Transmission Date: 20120928
  Serious: No
  Sender: FDA-Public Use
  Company Number: US-ASTRAZENECA-2011SE19387

PATIENT
  Age: 54 Year
  Sex: Female
  Weight: 82.6 kg

DRUGS (8)
  1. PRISTIQ [Concomitant]
  2. METFORMIN HYDROCHLORIDE [Concomitant]
  3. SEROQUEL XR [Suspect]
     Route: 048
     Dates: start: 20110301, end: 20110301
  4. SEROQUEL XR [Suspect]
     Indication: BIPOLAR DISORDER
     Route: 048
     Dates: start: 20100201
  5. INSULIN [Concomitant]
  6. ACTOS [Concomitant]
  7. LISINOPRIL [Concomitant]
  8. PEPCID [Concomitant]

REACTIONS (2)
  - DRUG DOSE OMISSION [None]
  - INSOMNIA [None]
